FAERS Safety Report 14600509 (Version 1)
Quarter: 2018Q1

REPORT INFORMATION
  Report Type: Spontaneous
  Country: JP (occurrence: JP)
  Receive Date: 20180305
  Receipt Date: 20180305
  Transmission Date: 20180509
  Serious: Yes (Hospitalization, Other)
  Sender: FDA-Public Use
  Company Number: JP-GLAXOSMITHKLINE-JP2018JPN033438

PATIENT
  Sex: Male

DRUGS (3)
  1. FLUTIDE [Suspect]
     Active Substance: FLUTICASONE PROPIONATE
     Dosage: UNK, TID
     Route: 055
  2. SEREVENT DISKUS [Suspect]
     Active Substance: SALMETEROL XINAFOATE
     Dosage: UNK, TID
     Route: 055
  3. SERETIDE [Suspect]
     Active Substance: FLUTICASONE PROPIONATE\SALMETEROL XINAFOATE
     Dosage: UNK UNK, TID
     Route: 055

REACTIONS (5)
  - Drug effect incomplete [Unknown]
  - Hospitalisation [Recovering/Resolving]
  - Product use issue [Unknown]
  - Inappropriate schedule of drug administration [Unknown]
  - Prescribed overdose [Unknown]
